FAERS Safety Report 10480422 (Version 1)
Quarter: 2014Q3

REPORT INFORMATION
  Report Type: Spontaneous
  Country: ES (occurrence: ES)
  Receive Date: 20140929
  Receipt Date: 20140929
  Transmission Date: 20150326
  Serious: Yes (Other)
  Sender: FDA-Public Use
  Company Number: ES-AMGEN-ESPSP2014073881

PATIENT
  Age: 66 Year
  Sex: Female

DRUGS (5)
  1. ENBREL [Suspect]
     Active Substance: ETANERCEPT
     Indication: PRODUCT USED FOR UNKNOWN INDICATION
     Dosage: 50 MG, UNK
     Route: 065
  2. LEVEMIR [Concomitant]
     Active Substance: INSULIN DETEMIR
     Dosage: UNK
  3. NOVORAPID [Concomitant]
     Active Substance: INSULIN ASPART
     Dosage: UNK
  4. MIOL                               /00661201/ [Concomitant]
     Indication: PROPHYLAXIS
     Dosage: UNK
  5. NAPROSYN [Concomitant]
     Active Substance: NAPROXEN
     Indication: PAIN
     Dosage: UNK UNK, AS NECESSARY

REACTIONS (11)
  - Pain in extremity [Unknown]
  - Mouth swelling [Unknown]
  - Swollen tongue [Unknown]
  - Convulsion [Unknown]
  - Oropharyngeal pain [Unknown]
  - Asthenia [Unknown]
  - Haematoma [Unknown]
  - Loss of consciousness [Unknown]
  - Amnesia [Unknown]
  - Anxiety [Unknown]
  - Urticaria [Unknown]

NARRATIVE: CASE EVENT DATE: 20140909
